FAERS Safety Report 5636833-3 (Version None)
Quarter: 2008Q1

REPORT INFORMATION
  Report Type: 
  Country: None (occurrence: None)
  Receive Date: 20080225
  Receipt Date: 20080214
  Transmission Date: 20080703
  Serious: Yes (Hospitalization)
  Sender: FDA-Public Use
  Company Number: US-JNJFOC-20080203743

PATIENT
  Sex: Female
  Weight: 100.25 kg

DRUGS (14)
  1. DURAGESIC-100 [Suspect]
     Route: 062
  2. DURAGESIC-100 [Suspect]
     Indication: INTERVERTEBRAL DISC COMPRESSION
     Route: 062
  3. MORPHINE SULFATE [Suspect]
     Indication: BACK PAIN
     Route: 048
  4. METHADONE HCL [Suspect]
     Indication: BACK PAIN
     Route: 048
  5. PERCOCET [Suspect]
     Indication: INTERVERTEBRAL DISC COMPRESSION
     Dosage: 10/325 MG
     Route: 048
  6. CENTRUM SILVER [Concomitant]
     Route: 048
  7. FOLIC ACID [Concomitant]
     Route: 048
  8. ASCORBIC ACID [Concomitant]
     Route: 048
  9. PHENERGAN HCL [Concomitant]
     Indication: NAUSEA
     Dosage: AS NEEDED
     Route: 048
  10. PHENERGAN HCL [Concomitant]
     Dosage: AS NEEDED
     Route: 054
  11. LASIX [Concomitant]
     Indication: HYPERTENSION
     Route: 048
  12. ZANAFLEX [Concomitant]
     Indication: MUSCLE SPASMS
     Route: 048
  13. KLONOPIN [Concomitant]
     Indication: ANXIETY
     Route: 048
  14. PROTONIX [Concomitant]
     Indication: GASTRIC DISORDER
     Route: 048

REACTIONS (19)
  - ABDOMINAL PAIN [None]
  - BACK PAIN [None]
  - BEDRIDDEN [None]
  - COLITIS ULCERATIVE [None]
  - CROHN'S DISEASE [None]
  - CRYING [None]
  - DIARRHOEA [None]
  - DRUG DOSE OMISSION [None]
  - FEELING ABNORMAL [None]
  - FEELING HOT [None]
  - HYPERHIDROSIS [None]
  - HYPERSOMNIA [None]
  - HYPOVENTILATION [None]
  - INCORRECT DRUG ADMINISTRATION DURATION [None]
  - NASAL ULCER [None]
  - RESPIRATORY ARREST [None]
  - THERAPEUTIC RESPONSE DECREASED [None]
  - VOMITING [None]
  - WITHDRAWAL SYNDROME [None]
